FAERS Safety Report 18755944 (Version 1)
Quarter: 2021Q1

REPORT INFORMATION
  Report Type: Spontaneous
  Country: US (occurrence: US)
  Receive Date: 20210119
  Receipt Date: 20210119
  Transmission Date: 20210419
  Serious: Yes (Other)
  Sender: FDA-Public Use
  Company Number: US-BAYER-2021-020064

PATIENT

DRUGS (1)
  1. AFRIN ORIGINAL [Suspect]
     Active Substance: OXYMETAZOLINE HYDROCHLORIDE

REACTIONS (4)
  - Nasal congestion [Unknown]
  - Blood pressure increased [Unknown]
  - Gait disturbance [Unknown]
  - Drug dependence [Unknown]
